FAERS Safety Report 8583726-8 (Version None)
Quarter: 2012Q3

REPORT INFORMATION
  Report Type: 
  Country: None (occurrence: None)
  Receive Date: 20120810
  Receipt Date: 20120718
  Transmission Date: 20120928
  Serious: Yes (Hospitalization)
  Sender: FDA-Public Use
  Company Number: JP-009507513-1207JPN007997

PATIENT

DRUGS (8)
  1. REBETOL [Suspect]
     Route: 048
     Dates: start: 20120608
  2. PEG-INTRON [Suspect]
     Indication: HEPATITIS C
     Dosage: 1.2G/KG/WEEK
     Route: 058
     Dates: start: 20120518
  3. ALLEGRA [Concomitant]
     Route: 048
     Dates: start: 20120523, end: 20120601
  4. PREDNISOLONE [Concomitant]
     Route: 048
     Dates: start: 20120521
  5. REBETOL [Suspect]
     Indication: HEPATITIS C
     Route: 048
     Dates: start: 20120518, end: 20120607
  6. TELAVIC [Suspect]
     Indication: HEPATITIS C
     Route: 048
     Dates: start: 20120518
  7. ALLOPURINOL [Concomitant]
     Route: 048
     Dates: start: 20120521
  8. LANSOPRAZOLE [Concomitant]
     Indication: PROPHYLAXIS
     Route: 048
     Dates: start: 20120522

REACTIONS (1)
  - RASH [None]
